FAERS Safety Report 6565281-7 (Version None)
Quarter: 2010Q1

REPORT INFORMATION
  Report Type: 
  Country: None (occurrence: None)
  Receive Date: 20100201
  Receipt Date: 20100126
  Transmission Date: 20100710
  Serious: Yes (Hospitalization)
  Sender: FDA-Public Use
  Company Number: IT-ROCHE-681698

PATIENT
  Sex: Male

DRUGS (5)
  1. ROCEPHIN [Suspect]
     Indication: PNEUMONIA
     Dosage: FREQUENCY: DAILY
     Route: 042
     Dates: start: 20091225, end: 20091231
  2. RIFADIN [Concomitant]
     Indication: TUBERCULOSIS
     Dosage: FREQUENCY: UNK
     Route: 048
     Dates: start: 20091229, end: 20091231
  3. NICOZID [Concomitant]
     Indication: TUBERCULOSIS
     Dosage: FREQUENCY: UNK
     Route: 048
     Dates: start: 20091229, end: 20091231
  4. ETHAMBUTOL HYDROCHLORIDE [Concomitant]
     Indication: TUBERCULOSIS
     Dosage: FREQUENCY: UNK  DRUG REPORTED AS: ETHAMBUTOL/ETAPIAM
     Route: 048
     Dates: start: 20091229, end: 20091231
  5. PIRALDINA [Concomitant]
     Indication: TUBERCULOSIS
     Dosage: FREQUENCY: UNK
     Route: 048
     Dates: start: 20091229, end: 20091231

REACTIONS (2)
  - PRURITUS [None]
  - RASH MACULO-PAPULAR [None]
